FAERS Safety Report 19392177 (Version 2)
Quarter: 2021Q2

REPORT INFORMATION
  Report Type: Spontaneous
  Country: CL (occurrence: CL)
  Receive Date: 20210608
  Receipt Date: 20210617
  Transmission Date: 20210717
  Serious: Yes (Death, Other)
  Sender: FDA-Public Use
  Company Number: CL-PFIZER INC-2021619059

PATIENT
  Age: 83 Year
  Sex: Female

DRUGS (2)
  1. AROMASIN [Suspect]
     Active Substance: EXEMESTANE
     Dosage: UNK
  2. IBRANCE [Suspect]
     Active Substance: PALBOCICLIB
     Dosage: UNK

REACTIONS (3)
  - Death [Fatal]
  - Liver disorder [Unknown]
  - Liver function test abnormal [Unknown]
